FAERS Safety Report 6223674-1 (Version None)
Quarter: 2009Q2

REPORT INFORMATION
  Report Type: 
  Country: None (occurrence: None)
  Receive Date: 20090611
  Receipt Date: 20090306
  Transmission Date: 20091009
  Serious: No
  Sender: FDA-Public Use
  Company Number: US-ABBOTT-08P-163-0477343-00

PATIENT
  Sex: Female
  Weight: 79.45 kg

DRUGS (15)
  1. HUMIRA [Suspect]
     Indication: ANKYLOSING SPONDYLITIS
     Route: 058
  2. ZOLOFT [Concomitant]
     Indication: DEPRESSION
     Route: 048
     Dates: start: 20010101
  3. SYNTHROID [Concomitant]
     Indication: THYROID DISORDER
     Route: 048
     Dates: start: 20000101
  4. CLOAZEPAM [Concomitant]
     Indication: ANXIETY
     Route: 048
     Dates: start: 20030101
  5. AMBIEN CR [Concomitant]
     Indication: INSOMNIA
     Route: 048
     Dates: start: 20010101
  6. NORCO [Concomitant]
     Indication: PAIN
     Dosage: 10/325 MG
     Route: 048
     Dates: start: 20040101
  7. NORCO [Concomitant]
     Indication: ANKYLOSING SPONDYLITIS
  8. METOPROLOL SUCCINATE [Concomitant]
     Indication: VENTRICULAR DYSFUNCTION
     Route: 048
     Dates: start: 20080301
  9. METOPROLOL SUCCINATE [Concomitant]
     Indication: PULMONARY VALVE INCOMPETENCE
  10. BUFFERIN [Concomitant]
     Indication: CARDIAC DISORDER
     Route: 048
     Dates: start: 20080301
  11. ELAVIL [Concomitant]
     Indication: NEURALGIA
     Dosage: AT BEDTIME
     Route: 048
     Dates: start: 20060101
  12. ESTROGENIC SUBSTANCE [Concomitant]
     Indication: HORMONE REPLACEMENT THERAPY
     Route: 061
     Dates: start: 20010101
  13. MULTI-VITAMIN [Concomitant]
     Indication: VITAMIN SUPPLEMENTATION
     Route: 048
     Dates: start: 20010101
  14. CALCIUM [Concomitant]
     Indication: MINERAL SUPPLEMENTATION
     Route: 048
     Dates: start: 20010101
  15. VITAMIN D [Concomitant]
     Indication: VITAMIN SUPPLEMENTATION
     Route: 048
     Dates: start: 20080101

REACTIONS (5)
  - DRUG INEFFECTIVE [None]
  - INJECTION SITE HAEMATOMA [None]
  - INJECTION SITE INDURATION [None]
  - INJECTION SITE REACTION [None]
  - INJECTION SITE URTICARIA [None]
